FAERS Safety Report 7274477-0 (Version None)
Quarter: 2011Q1

REPORT INFORMATION
  Report Type: 
  Country: None (occurrence: None)
  Receive Date: 20110204
  Receipt Date: 20110131
  Transmission Date: 20110831
  Serious: No
  Sender: FDA-Public Use
  Company Number: US-PFIZER INC-2010136029

PATIENT
  Sex: Male
  Weight: 94.331 kg

DRUGS (1)
  1. ZITHROMAX [Suspect]
     Indication: CELLULITIS
     Dosage: UNK
     Route: 030
     Dates: start: 20101026

REACTIONS (3)
  - APPLICATION SITE PAIN [None]
  - INCORRECT ROUTE OF DRUG ADMINISTRATION [None]
  - PAIN [None]
